FAERS Safety Report 7736534-1 (Version None)
Quarter: 2011Q3

REPORT INFORMATION
  Report Type: 
  Country: None (occurrence: None)
  Receive Date: 20110908
  Receipt Date: 20110831
  Transmission Date: 20111222
  Serious: Yes (Other)
  Sender: FDA-Public Use
  Company Number: US-GENZYME-THYM-1002731

PATIENT
  Age: 65 Year
  Sex: Male

DRUGS (4)
  1. HYDROCORTISONE [Concomitant]
     Indication: PROPHYLAXIS AGAINST TRANSPLANT REJECTION
     Dosage: 25 MG, UNK
     Dates: start: 20110701, end: 20110701
  2. HEPARIN [Concomitant]
     Indication: PROPHYLAXIS AGAINST TRANSPLANT REJECTION
     Dosage: 1000 U, UNK
     Dates: start: 20110701, end: 20110701
  3. SODIUM CHLORIDE [Concomitant]
     Indication: PROPHYLAXIS AGAINST TRANSPLANT REJECTION
     Dosage: 500 ML, UNK
     Dates: start: 20110701, end: 20110701
  4. THYMOGLOBULIN [Suspect]
     Indication: PROPHYLAXIS AGAINST TRANSPLANT REJECTION
     Dosage: 125 MG, UNK
     Route: 042

REACTIONS (4)
  - MENTAL STATUS CHANGES [None]
  - ESCHAR [None]
  - EXTRAVASATION [None]
  - BLISTER [None]
